FAERS Safety Report 14105872 (Version 2)
Quarter: 2017Q4

REPORT INFORMATION
  Report Type: Spontaneous
  Country: FR (occurrence: FR)
  Receive Date: 20171019
  Receipt Date: 20171101
  Transmission Date: 20180321
  Serious: Yes (Hospitalization)
  Sender: FDA-Public Use
  Company Number: FR-009507513-1710FRA008851

PATIENT
  Age: 40 Year
  Sex: Male

DRUGS (7)
  1. EMEND [Suspect]
     Active Substance: APREPITANT
     Indication: PROPHYLAXIS OF NAUSEA AND VOMITING
     Dosage: 1 DF, ONCE
     Route: 048
     Dates: start: 20171005, end: 20171005
  2. ZOPHREN (ONDANSETRON) [Suspect]
     Active Substance: ONDANSETRON
     Indication: PROPHYLAXIS OF NAUSEA AND VOMITING
     Dosage: 1 DF, ONCE (8 MG / 4 ML IN PRE-FILLED SYRINGE)
     Route: 048
     Dates: start: 20171005, end: 20171005
  3. EMEND [Suspect]
     Active Substance: APREPITANT
     Dosage: 1 DF, ONCE
     Route: 048
     Dates: start: 20171009, end: 20171009
  4. METHYLPREDNISOLONE. [Suspect]
     Active Substance: METHYLPREDNISOLONE
     Indication: PREMEDICATION
     Dosage: 60 MG, ONCE
     Route: 042
     Dates: start: 20171005, end: 20171005
  5. ETOPOSIDE. [Suspect]
     Active Substance: ETOPOSIDE
     Indication: SEMINOMA
     Dosage: INTAKE
     Route: 042
     Dates: start: 20171005, end: 20171005
  6. ZOPHREN (ONDANSETRON) [Suspect]
     Active Substance: ONDANSETRON
     Dosage: 1 DF, ONCE (8 MG / 4 ML IN PRE-FILLED SYRINGE)
     Route: 048
     Dates: start: 20171009, end: 20171009
  7. METHYLPREDNISOLONE. [Suspect]
     Active Substance: METHYLPREDNISOLONE
     Dosage: 60 MG, ONCE
     Route: 042
     Dates: start: 20171009, end: 20171009

REACTIONS (1)
  - Tonic clonic movements [Recovered/Resolved]

NARRATIVE: CASE EVENT DATE: 20171005
